FAERS Safety Report 5717499-0 (Version None)
Quarter: 2008Q2

REPORT INFORMATION
  Report Type: 
  Country: None (occurrence: None)
  Receive Date: 20080421
  Receipt Date: 20071115
  Transmission Date: 20081010
  Serious: Yes (Disabling)
  Sender: FDA-Public Use
  Company Number: WAES 0711USA04013

PATIENT
  Age: 40 Year
  Sex: Female

DRUGS (3)
  1. SINGULAIR [Suspect]
     Indication: ASTHMA
     Dosage: 10 MG/DAILY/PO
     Route: 048
  2. ADVAIR DISKUS 100/50 [Concomitant]
  3. XOPENEX [Concomitant]

REACTIONS (1)
  - TREMOR [None]
